FAERS Safety Report 15215551 (Version 1)
Quarter: 2018Q3

REPORT INFORMATION
  Report Type: Spontaneous
  Country: DE (occurrence: DE)
  Receive Date: 20180730
  Receipt Date: 20180730
  Transmission Date: 20181010
  Serious: Yes (Other)
  Sender: FDA-Public Use
  Company Number: DE-LINDE-DE-E2B_00000019

PATIENT
  Age: 32 Year
  Sex: Male

DRUGS (1)
  1. NITROUS OXIDE. [Suspect]
     Active Substance: NITROUS OXIDE
     Indication: DRUG ABUSE
     Route: 065

REACTIONS (2)
  - Subacute combined cord degeneration [Unknown]
  - Drug abuse [Recovered/Resolved]
